FAERS Safety Report 5541713-8 (Version None)
Quarter: 2007Q4

REPORT INFORMATION
  Report Type: 
  Country: None (occurrence: None)
  Receive Date: 20071210
  Receipt Date: 20061212
  Transmission Date: 20080405
  Serious: No
  Sender: FDA-Public Use
  Company Number: US-AMGEN-KDL203480

PATIENT
  Sex: Female

DRUGS (2)
  1. ENBREL [Suspect]
     Indication: RHEUMATOID ARTHRITIS
     Route: 058
     Dates: start: 20031001
  2. METHOTREXATE [Concomitant]
     Route: 065
     Dates: start: 20030101

REACTIONS (5)
  - FALL [None]
  - HAEMATOMA [None]
  - HAEMORRHAGE [None]
  - METATARSAL EXCISION [None]
  - THROMBOSIS [None]
